FAERS Safety Report 5683816-3 (Version None)
Quarter: 2008Q1

REPORT INFORMATION
  Report Type: 
  Country: None (occurrence: None)
  Receive Date: 20080328
  Receipt Date: 20080319
  Transmission Date: 20080703
  Serious: Yes (Hospitalization)
  Sender: FDA-Public Use
  Company Number: US-JNJFOC-20080305491

PATIENT
  Sex: Female
  Weight: 79.38 kg

DRUGS (9)
  1. DURAGESIC-100 [Suspect]
     Route: 062
  2. DURAGESIC-100 [Suspect]
     Indication: PAIN
     Route: 062
  3. FLOVENT [Concomitant]
     Indication: ASTHMA
     Route: 055
  4. ALBUTEROL [Concomitant]
     Indication: ASTHMA
     Route: 055
  5. PLAQUENIL [Concomitant]
     Indication: RHEUMATOID ARTHRITIS
     Route: 048
  6. DAPRO [Concomitant]
     Indication: RHEUMATOID ARTHRITIS
     Route: 048
  7. PREDNISONE TAB [Concomitant]
     Indication: RHEUMATOID ARTHRITIS
     Route: 048
  8. ULTRACET [Concomitant]
     Indication: BREAKTHROUGH PAIN
     Route: 048
  9. THYROID TAB [Concomitant]
     Indication: THYROID DISORDER
     Route: 048

REACTIONS (6)
  - COMPRESSION FRACTURE [None]
  - DEVICE LEAKAGE [None]
  - INCORRECT DRUG ADMINISTRATION DURATION [None]
  - KNEE ARTHROPLASTY [None]
  - PAIN [None]
  - SPINAL COMPRESSION FRACTURE [None]
